FAERS Safety Report 4830722-X (Version None)
Quarter: 2005Q4

REPORT INFORMATION
  Report Type: 
  Country: None (occurrence: None)
  Receive Date: 20051114
  Receipt Date: 20051027
  Transmission Date: 20060501
  Serious: Yes (Congenital Anomaly)
  Sender: FDA-Public Use
  Company Number: 32510

PATIENT
  Sex: Female

DRUGS (1)
  1. BRINZOLAMIDE 1% SUSPENSION [Suspect]
     Dosage: OPHT
     Route: 047

REACTIONS (3)
  - DRUG EXPOSURE DURING PREGNANCY [None]
  - MACRODACTYLY [None]
  - PREGNANCY [None]
